FAERS Safety Report 9167586 (Version 1)
Quarter: 2013Q1

REPORT INFORMATION
  Report Type: Spontaneous
  Country: US (occurrence: US)
  Receive Date: 20130318
  Receipt Date: 20130318
  Transmission Date: 20140127
  Serious: Yes (Other)
  Sender: FDA-Public Use
  Company Number: US-JNJFOC-20110801930

PATIENT
  Sex: Female

DRUGS (3)
  1. LEVAQUIN [Suspect]
     Indication: SURGERY
     Route: 048
  2. LEVAQUIN [Suspect]
     Indication: BACTERIAL INFECTION
     Route: 048
  3. LEVAQUIN [Suspect]
     Indication: SURGERY
     Route: 042
     Dates: start: 20070822

REACTIONS (7)
  - Depression [Not Recovered/Not Resolved]
  - Tendon rupture [Unknown]
  - Rotator cuff syndrome [Unknown]
  - Rotator cuff syndrome [Unknown]
  - Pruritus [Unknown]
  - Rash [Unknown]
  - Respiratory disorder [Unknown]
